FAERS Safety Report 6089328-X (Version None)
Quarter: 2009Q1

REPORT INFORMATION
  Report Type: 
  Country: None (occurrence: None)
  Receive Date: 20090224
  Receipt Date: 20090210
  Transmission Date: 20090719
  Serious: Yes (Hospitalization, Other)
  Sender: FDA-Public Use
  Company Number: PHHY2009FR04903

PATIENT
  Sex: Female

DRUGS (6)
  1. TAREG [Suspect]
     Indication: HYPERTENSION
     Dosage: 160 MG, QD
  2. AMLOR [Suspect]
     Dosage: 5 MG DAILY
  3. BURINEX [Suspect]
     Indication: RENAL FAILURE
     Dosage: 2.5 MG/DAY
  4. PRAZEPAM [Suspect]
     Indication: ANXIETY
     Dosage: 1 DF DAILY
  5. SOLUPRED [Concomitant]
     Indication: IDIOPATHIC THROMBOCYTOPENIC PURPURA
     Dosage: 20 MG/DAY
  6. CALCIPRAT [Concomitant]

REACTIONS (8)
  - DEHYDRATION [None]
  - EXTRAPYRAMIDAL DISORDER [None]
  - FALL [None]
  - MYOGLOBIN BLOOD INCREASED [None]
  - ORTHOSTATIC HYPOTENSION [None]
  - PLATELET COUNT DECREASED [None]
  - PURPURA [None]
  - TROPONIN INCREASED [None]
